FAERS Safety Report 8904096 (Version 1)
Quarter: 2012Q4

REPORT INFORMATION
  Report Type: 
  Country: US (occurrence: US)
  Receive Date: 20121112
  Receipt Date: 20121112
  Transmission Date: 20130627
  Serious: No
  Sender: FDA-Public Use
  Company Number: US-COVIDIEN/TYCO HEALTHCARE/MALLINCKRODT-T201203708

PATIENT
  Age: 75 Year
  Sex: Male
  Weight: 58.96 kg

DRUGS (7)
  1. FENTANYL TRANSDERMAL SYSTEM [Suspect]
     Indication: RHEUMATOID ARTHRITIS
     Dosage: 25 mcg/hr q72 hrs
     Route: 062
     Dates: start: 20121005, end: 20121020
  2. VICODIN [Concomitant]
     Indication: PAIN
     Dosage: 10/325 mg, 6 tablets per day
     Route: 048
     Dates: end: 20121005
  3. COREG [Concomitant]
     Dosage: UNK
  4. LISINOPRIL [Concomitant]
     Dosage: UNK
  5. PLAVIX [Concomitant]
     Dosage: UNK
  6. ADVAIR [Concomitant]
     Dosage: UNK
  7. SPIRIVA [Concomitant]
     Dosage: UNK

REACTIONS (4)
  - Cold sweat [Recovered/Resolved]
  - Confusional state [Recovered/Resolved]
  - Feeling of body temperature change [Recovered/Resolved]
  - Fatigue [Recovered/Resolved]
